FAERS Safety Report 6465566-9 (Version None)
Quarter: 2009Q4

REPORT INFORMATION
  Report Type: 
  Country: None (occurrence: None)
  Receive Date: 20091201
  Receipt Date: 20091125
  Transmission Date: 20100525
  Serious: Yes (Other)
  Sender: FDA-Public Use
  Company Number: JP-PFIZER INC-2009303219

PATIENT
  Age: 12 Year
  Sex: Male
  Weight: 72.9 kg

DRUGS (6)
  1. AMLODIPINE BESYLATE [Suspect]
     Indication: HYPERTENSION
  2. DOXAZOSIN MESILATE [Suspect]
     Indication: HYPERTENSION
  3. CARVEDILOL [Suspect]
  4. CANDESARTAN CILEXETIL [Suspect]
  5. IMIDAPRIL [Suspect]
  6. AMITRIPTYLINE HYDROCHLORIDE [Concomitant]

REACTIONS (1)
  - GROWTH HORMONE DEFICIENCY [None]
